FAERS Safety Report 16386701 (Version 3)
Quarter: 2019Q3

REPORT INFORMATION
  Report Type: Spontaneous
  Country: US (occurrence: US)
  Receive Date: 20190604
  Receipt Date: 20190723
  Transmission Date: 20191004
  Serious: Yes (Hospitalization, Disabling, Other)
  Sender: FDA-Public Use
  Company Number: US-009507513-1905USA013852

PATIENT
  Age: 74 Year
  Sex: Male
  Weight: 77.05 kg

DRUGS (12)
  1. SYNTHROID [Concomitant]
     Active Substance: LEVOTHYROXINE SODIUM
     Dosage: TAKE 25 MCG BY MOUTH DAILY
     Route: 048
  2. ZOFRAN [Concomitant]
     Active Substance: ONDANSETRON HYDROCHLORIDE
     Indication: VOMITING
  3. SYNTHROID [Concomitant]
     Active Substance: LEVOTHYROXINE SODIUM
     Indication: HYPOTHYROIDISM
     Dosage: TOTAL DAILY DOSAGE 50 MCG
     Route: 048
     Dates: start: 201704
  4. ALPRAZOLAM. [Concomitant]
     Active Substance: ALPRAZOLAM
  5. KEYTRUDA [Suspect]
     Active Substance: PEMBROLIZUMAB
     Indication: METASTATIC MALIGNANT MELANOMA
     Dosage: 150 MILLIGRAM, EVERY 3 WEEKS, 2MG/KG
     Route: 042
     Dates: start: 201606, end: 201810
  6. ZOFRAN [Concomitant]
     Active Substance: ONDANSETRON HYDROCHLORIDE
     Indication: NAUSEA
     Dosage: TAKE 8 MG BY MOUTH 3 TIMES DAILY AS NEEDED
     Route: 048
     Dates: start: 201607
  7. LIPITOR [Concomitant]
     Active Substance: ATORVASTATIN CALCIUM
     Dosage: 20 MG BY MOUTH EVERY EVENING
     Route: 048
  8. COLACE [Concomitant]
     Active Substance: DOCUSATE SODIUM
     Indication: CONSTIPATION
     Dosage: 1 CAPSULE BY MOUTH 2 TIMES DAILY
     Route: 048
  9. TUMS [Concomitant]
     Active Substance: CALCIUM CARBONATE
     Indication: DYSPEPSIA
     Dosage: 1 TABLET BY MOUTH EVERY 2 HOURS AS NEEDED
     Route: 048
  10. SENOKOT [Concomitant]
     Active Substance: SENNOSIDES
     Indication: CONSTIPATION
     Dosage: TAKE 2 TABLETS BY MOUTH NIGHTLY AS NEEDED
     Route: 048
  11. FOLIC ACID (+) VITAMIN B COMPLEX [Concomitant]
     Dosage: MULTIVITAMIN WITH FOLIC ACID 400 MCG TABLET, TAKE 1 TABLET BY MOUTH DAILY
     Route: 048
  12. TUMS [Concomitant]
     Active Substance: CALCIUM CARBONATE
     Indication: HYPOCALCAEMIA

REACTIONS (12)
  - Acute kidney injury [Unknown]
  - Hypotension [Recovering/Resolving]
  - Pemphigoid [Not Recovered/Not Resolved]
  - Asthenia [Unknown]
  - Rash pruritic [Recovering/Resolving]
  - Neurodermatitis [Recovering/Resolving]
  - Blood glucose increased [Unknown]
  - Erythema multiforme [Unknown]
  - Blood creatinine increased [Unknown]
  - Pyrexia [Recovered/Resolved]
  - Oedema peripheral [Recovering/Resolving]
  - Dehydration [Unknown]

NARRATIVE: CASE EVENT DATE: 2018
